FAERS Safety Report 15753255 (Version 2)
Quarter: 2019Q2

REPORT INFORMATION
  Report Type: Spontaneous
  Country: US (occurrence: US)
  Receive Date: 20181222
  Receipt Date: 20190507
  Transmission Date: 20190711
  Serious: No
  Sender: FDA-Public Use
  Company Number: US-SHIRE-US201849295

PATIENT
  Sex: Female
  Weight: 63.49 kg

DRUGS (4)
  1. XIIDRA [Suspect]
     Active Substance: LIFITEGRAST
     Indication: DRY EYE
     Dosage: 2 GTT, 2X/DAY:BID
     Route: 047
     Dates: start: 201701
  2. AZELASTINE HYDROCHLORIDE. [Concomitant]
     Active Substance: AZELASTINE HYDROCHLORIDE
     Indication: OFF LABEL USE
  3. FLUTICASONE. [Concomitant]
     Active Substance: FLUTICASONE
     Indication: HYPERSENSITIVITY
  4. AZELASTINE HYDROCHLORIDE. [Concomitant]
     Active Substance: AZELASTINE HYDROCHLORIDE
     Indication: HYPERSENSITIVITY

REACTIONS (6)
  - Off label use [Not Recovered/Not Resolved]
  - Vision blurred [Not Recovered/Not Resolved]
  - Inappropriate schedule of product administration [Unknown]
  - Drug ineffective [Not Recovered/Not Resolved]
  - Instillation site reaction [Not Recovered/Not Resolved]
  - Instillation site pain [Not Recovered/Not Resolved]

NARRATIVE: CASE EVENT DATE: 2018
